FAERS Safety Report 6226075-5 (Version None)
Quarter: 2009Q2

REPORT INFORMATION
  Report Type: 
  Country: None (occurrence: None)
  Receive Date: 20090612
  Receipt Date: 20090511
  Transmission Date: 20091009
  Serious: No
  Sender: FDA-Public Use
  Company Number: US-ABBOTT-09P-163-0572134-00

PATIENT
  Sex: Female
  Weight: 49.94 kg

DRUGS (8)
  1. HUMIRA [Suspect]
     Indication: RHEUMATOID ARTHRITIS
     Route: 058
     Dates: start: 20070401, end: 20081201
  2. HUMIRA [Suspect]
     Route: 058
     Dates: start: 20090504
  3. EYE DROPS [Concomitant]
     Indication: DRUG USE FOR UNKNOWN INDICATION
  4. VITAMIN D [Concomitant]
     Indication: DRUG USE FOR UNKNOWN INDICATION
  5. ALEVE [Concomitant]
     Indication: DRUG USE FOR UNKNOWN INDICATION
  6. LOPRESOR [Concomitant]
     Indication: DRUG USE FOR UNKNOWN INDICATION
  7. BENICAR [Concomitant]
     Indication: DRUG USE FOR UNKNOWN INDICATION
  8. ASPIRIN [Concomitant]
     Indication: DRUG USE FOR UNKNOWN INDICATION

REACTIONS (1)
  - SWELLING FACE [None]
